FAERS Safety Report 19477560 (Version 1)
Quarter: 2021Q2

REPORT INFORMATION
  Report Type: Spontaneous
  Country: FR (occurrence: FR)
  Receive Date: 20210630
  Receipt Date: 20210630
  Transmission Date: 20210717
  Serious: Yes (Hospitalization)
  Sender: FDA-Public Use
  Company Number: FR-MYLANLABS-2021M1038364

PATIENT
  Age: 88 Year
  Sex: Female

DRUGS (2)
  1. CIPROFLOXACIN. [Interacting]
     Active Substance: CIPROFLOXACIN
     Indication: URINARY TRACT INFECTION
     Dosage: 250 MILLIGRAM, BID FROM OCTOBER 5TH TO 15TH
     Route: 048
  2. METHOTREXATE. [Suspect]
     Active Substance: METHOTREXATE
     Indication: RHEUMATOID ARTHRITIS
     Dosage: 10 MILLIGRAM, QW
     Route: 048
     Dates: start: 2013

REACTIONS (5)
  - Pancytopenia [Recovered/Resolved]
  - Drug level increased [Recovered/Resolved]
  - Lung disorder [Unknown]
  - Haematoma [Unknown]
  - Labelled drug-drug interaction medication error [Recovered/Resolved]
